FAERS Safety Report 23762007 (Version 1)
Quarter: 2024Q2

REPORT INFORMATION
  Report Type: Spontaneous
  Country: IT (occurrence: IT)
  Receive Date: 20240419
  Receipt Date: 20240419
  Transmission Date: 20240715
  Serious: Yes (Hospitalization)
  Sender: FDA-Public Use
  Company Number: None

PATIENT
  Age: 78 Year
  Sex: Male

DRUGS (1)
  1. BAVENCIO [Suspect]
     Active Substance: AVELUMAB
     Indication: Bladder transitional cell carcinoma recurrent
     Route: 042
     Dates: start: 20230214, end: 20231109

REACTIONS (1)
  - Autoimmune lung disease [Recovering/Resolving]

NARRATIVE: CASE EVENT DATE: 20231122
